FAERS Safety Report 15961271 (Version 3)
Quarter: 2019Q4

REPORT INFORMATION
  Report Type: Spontaneous
  Country: JP (occurrence: JP)
  Receive Date: 20190214
  Receipt Date: 20191205
  Transmission Date: 20200122
  Serious: Yes (Hospitalization, Other)
  Sender: FDA-Public Use
  Company Number: JP-009507513-1902JPN000436J

PATIENT
  Age: 71 Year
  Sex: Male
  Weight: 60 kg

DRUGS (3)
  1. PACLITAXEL. [Suspect]
     Active Substance: PACLITAXEL
     Indication: NON-SMALL CELL LUNG CANCER
     Dosage: 300 MILLIGRAM, Q3W
     Route: 041
     Dates: start: 20190122
  2. KEYTRUDA [Suspect]
     Active Substance: PEMBROLIZUMAB
     Indication: NON-SMALL CELL LUNG CANCER
     Dosage: 200 MILLIGRAM, Q3W
     Route: 041
     Dates: start: 20190122, end: 20190122
  3. CARBOPLATIN. [Suspect]
     Active Substance: CARBOPLATIN
     Indication: NON-SMALL CELL LUNG CANCER
     Dosage: 450 MILLIGRAM, Q3W
     Route: 041
     Dates: start: 20190122

REACTIONS (9)
  - Myalgia [Unknown]
  - Arthralgia [Unknown]
  - Constipation [Unknown]
  - Malaise [Unknown]
  - Drug eruption [Recovering/Resolving]
  - Neutropenia [Recovered/Resolved with Sequelae]
  - Febrile neutropenia [Unknown]
  - Rash [Recovering/Resolving]
  - Decreased appetite [Unknown]

NARRATIVE: CASE EVENT DATE: 20190122
